FAERS Safety Report 9366017 (Version 2)
Quarter: 2013Q3

REPORT INFORMATION
  Report Type: Spontaneous
  Country: IT (occurrence: IT)
  Receive Date: 20130625
  Receipt Date: 20130812
  Transmission Date: 20140515
  Serious: Yes (Hospitalization)
  Sender: FDA-Public Use
  Company Number: IT-JNJFOC-20130611253

PATIENT
  Age: 66 Year
  Sex: Female
  Weight: 74 kg

DRUGS (5)
  1. XARELTO [Suspect]
     Indication: THROMBOSIS PROPHYLAXIS
     Route: 048
     Dates: start: 20130604, end: 20130605
  2. PREFOLIC (CALCIUM LEVOMEFOLATE) [Concomitant]
     Route: 065
  3. TRIATEC [Concomitant]
     Route: 048
     Dates: start: 20130603, end: 20130606
  4. PANTOPRAZOLE [Concomitant]
     Route: 048
     Dates: start: 20130603, end: 20130606
  5. ONDANSETRON [Concomitant]
     Route: 065

REACTIONS (2)
  - Deep vein thrombosis [Not Recovered/Not Resolved]
  - Drug ineffective [Not Recovered/Not Resolved]
